FAERS Safety Report 8121575 (Version 2)
Quarter: 2012Q4

REPORT INFORMATION
  Report Type: 
  Country: US (occurrence: US)
  Receive Date: 20110906
  Receipt Date: 20121029
  Transmission Date: 20130627
  Serious: Yes (Death, Hospitalization)
  Sender: FDA-Public Use
  Company Number: US-GLAXOSMITHKLINE-A0797819A

PATIENT
  Age: 49 Year
  Sex: Male
  Weight: 115.9 kg

DRUGS (3)
  1. ROSIGLITAZONE MALEATE [Suspect]
     Indication: TYPE 2 DIABETES MELLITUS
     Route: 048
     Dates: end: 20080721
  2. AVANDAMET [Suspect]
     Indication: DIABETES MELLITUS
     Route: 048
     Dates: start: 200408, end: 200807
  3. TENORETIC [Concomitant]

REACTIONS (3)
  - Death [Fatal]
  - Myocardial infarction [Unknown]
  - Coronary artery disease [Unknown]
